FAERS Safety Report 8384710-X (Version None)
Quarter: 2012Q2

REPORT INFORMATION
  Report Type: 
  Country: None (occurrence: None)
  Receive Date: 20120524
  Receipt Date: 20120509
  Transmission Date: 20120825
  Serious: No
  Sender: FDA-Public Use
  Company Number: US-ASTRAZENECA-2012SE05260

PATIENT
  Age: 41 Year
  Sex: Female
  Weight: 119.7 kg

DRUGS (31)
  1. SEROQUEL [Suspect]
     Route: 048
     Dates: start: 20110101
  2. SEROQUEL [Suspect]
     Route: 048
  3. SEROQUEL [Suspect]
     Route: 048
  4. SEROQUEL [Suspect]
     Route: 048
  5. SEROQUEL [Suspect]
     Route: 048
  6. SEROQUEL [Suspect]
     Route: 048
  7. SEROQUEL [Suspect]
     Indication: MOOD SWINGS
     Route: 048
  8. SEROQUEL [Suspect]
     Indication: SCHIZOPHRENIA
     Route: 048
  9. SEROQUEL [Suspect]
     Route: 048
  10. ERGOCALCIFEROL [Concomitant]
     Route: 048
  11. SEROQUEL [Suspect]
     Route: 048
  12. SEROQUEL [Suspect]
     Route: 048
     Dates: start: 20110101
  13. HYDROCHLOROTHIAZIDE [Concomitant]
     Route: 048
  14. SEROQUEL [Suspect]
     Route: 048
  15. SEROQUEL [Suspect]
     Route: 048
  16. SEROQUEL [Suspect]
     Route: 048
  17. SEROQUEL [Suspect]
     Route: 048
  18. HYDROCHLOROTHIAZIDE [Concomitant]
     Indication: DIURETIC THERAPY
     Route: 048
  19. SEROQUEL [Suspect]
     Route: 048
  20. SEROQUEL [Suspect]
     Route: 048
     Dates: start: 20110101
  21. SEROQUEL [Suspect]
     Route: 048
  22. SEROQUEL [Suspect]
     Indication: AFFECTIVE DISORDER
     Route: 048
  23. SEROQUEL [Suspect]
     Route: 048
  24. SEROQUEL [Suspect]
     Route: 048
  25. SEROQUEL [Suspect]
     Route: 048
  26. SEROQUEL [Suspect]
     Route: 048
  27. SEROQUEL [Suspect]
     Route: 048
  28. SEROQUEL [Suspect]
     Indication: DEPRESSION
     Route: 048
  29. SEROQUEL [Suspect]
     Route: 048
     Dates: start: 20110101
  30. SEROQUEL [Suspect]
     Route: 048
  31. SEROQUEL [Suspect]
     Route: 048

REACTIONS (18)
  - HEADACHE [None]
  - INTENTIONAL DRUG MISUSE [None]
  - ESSENTIAL HYPERTENSION [None]
  - DIABETES MELLITUS [None]
  - VITAMIN D DEFICIENCY [None]
  - ADVERSE EVENT [None]
  - ACTINIC KERATOSIS [None]
  - CHEST DISCOMFORT [None]
  - MALAISE [None]
  - DIZZINESS [None]
  - BLOOD PRESSURE FLUCTUATION [None]
  - INSOMNIA [None]
  - FEELING JITTERY [None]
  - DRUG DISPENSING ERROR [None]
  - SCHIZOPHRENIA, CATATONIC TYPE [None]
  - ASTHENIA [None]
  - FEELING ABNORMAL [None]
  - PALPITATIONS [None]
